APPROVED DRUG PRODUCT: TRIFLUOPERAZINE HYDROCHLORIDE
Active Ingredient: TRIFLUOPERAZINE HYDROCHLORIDE
Strength: EQ 10MG BASE/ML
Dosage Form/Route: CONCENTRATE;ORAL
Application: A085787 | Product #001
Applicant: CHARTWELL RX SCIENCES LLC
Approved: Apr 15, 1982 | RLD: No | RS: No | Type: DISCN